FAERS Safety Report 6538700-X (Version None)
Quarter: 2010Q1

REPORT INFORMATION
  Report Type: 
  Country: None (occurrence: None)
  Receive Date: 20100113
  Receipt Date: 20100113
  Transmission Date: 20100710
  Serious: Yes (Other)
  Sender: FDA-Public Use
  Company Number: None

PATIENT
  Age: 34 Year
  Sex: Male
  Weight: 90.7194 kg

DRUGS (1)
  1. ZICAM NASAL SWABS ONE SWAB FOR TWO NOSTRILS MATRIXX INITIATIVES [Suspect]
     Indication: NASOPHARYNGITIS
     Dosage: ONE SWAB APPLICATION EVERY FOUR HOURS NASAL
     Route: 045

REACTIONS (2)
  - EPISTAXIS [None]
  - NASAL DRYNESS [None]
